FAERS Safety Report 26201148 (Version 1)
Quarter: 2025Q4

REPORT INFORMATION
  Report Type: Spontaneous
  Country: IL (occurrence: IL)
  Receive Date: 20251226
  Receipt Date: 20251226
  Transmission Date: 20260117
  Serious: Yes (Hospitalization, Disabling, Other)
  Sender: MERCK SHARP & DOHME LLC
  Company Number: IL-009507513-2363975

PATIENT
  Age: 63 Year
  Sex: Male

DRUGS (1)
  1. KEYTRUDA [Suspect]
     Active Substance: PEMBROLIZUMAB
     Indication: Non-small cell lung cancer
     Dates: start: 201412, end: 201811

REACTIONS (4)
  - Pneumonia [Unknown]
  - Pneumonia [Unknown]
  - Pain in extremity [Unknown]
  - Back pain [Unknown]
